FAERS Safety Report 9237952 (Version 1)
Quarter: 2013Q2

REPORT INFORMATION
  Report Type: Spontaneous
  Country: US (occurrence: None)
  Receive Date: 20130405
  Receipt Date: 20130405
  Transmission Date: 20140414
  Serious: Yes (Hospitalization, Other)
  Sender: FDA-Public Use
  Company Number: 2013035212

PATIENT
  Sex: Female

DRUGS (1)
  1. RHOPHYLAC [Suspect]

REACTIONS (2)
  - Haemorrhage [None]
  - Thrombosis [None]
